FAERS Safety Report 8419679-2 (Version None)
Quarter: 2012Q2

REPORT INFORMATION
  Report Type: 
  Country: None (occurrence: None)
  Receive Date: 20120604
  Receipt Date: 20120604
  Transmission Date: 20120825
  Serious: Yes (Life-Threatening, Hospitalization, Disabling)
  Sender: FDA-Public Use
  Company Number: None

PATIENT
  Age: 57 Year
  Sex: Female
  Weight: 90.7194 kg

DRUGS (2)
  1. ABILIFY [Suspect]
     Indication: DEPRESSION
     Dosage: 1 TABLET AT BEDTIME DAILY SL
     Route: 060
     Dates: start: 20080101, end: 20111201
  2. ABILIFY [Suspect]
     Indication: DEPRESSION
     Dosage: 2 TABLETS AT BEDTIME DAILY SL
     Route: 060
     Dates: start: 20111201, end: 20120318

REACTIONS (5)
  - TREMOR [None]
  - WHEELCHAIR USER [None]
  - GAIT DISTURBANCE [None]
  - FALL [None]
  - DYSKINESIA [None]
